FAERS Safety Report 5152385-9 (Version None)
Quarter: 2006Q4

REPORT INFORMATION
  Report Type: 
  Country: None (occurrence: None)
  Receive Date: 20061116
  Receipt Date: 20061108
  Transmission Date: 20070319
  Serious: Yes (Other)
  Sender: FDA-Public Use
  Company Number: BR-JNJFOC-20061102783

PATIENT
  Age: 7 Year
  Sex: Male

DRUGS (3)
  1. TOPAMAX [Suspect]
     Indication: CONVULSION PROPHYLAXIS
     Dosage: 6-7 MG/KG/DAY
     Route: 048
  2. VALPROATE SODIUM [Concomitant]
     Dosage: (^6 ML, 6 ML, 10 ML^)
  3. VALPROATE SODIUM [Concomitant]
     Indication: CONVULSION PROPHYLAXIS

REACTIONS (4)
  - LIVER DISORDER [None]
  - RENAL DISORDER [None]
  - SPLEEN DISORDER [None]
  - ULTRASOUND SCAN ABNORMAL [None]
